FAERS Safety Report 5046269-4 (Version None)
Quarter: 2006Q3

REPORT INFORMATION
  Report Type: 
  Country: None (occurrence: None)
  Receive Date: 20060707
  Receipt Date: 20060707
  Transmission Date: 20061208
  Serious: Yes (Hospitalization)
  Sender: FDA-Public Use
  Company Number: None

PATIENT
  Age: 67 Year
  Sex: Female
  Weight: 50.8029 kg

DRUGS (2)
  1. GLEEVEC [Suspect]
     Indication: LEIOMYOSARCOMA METASTATIC
     Dosage: 300 MG PO BID
     Route: 048
     Dates: start: 20060523
  2. TAXOL [Suspect]
     Dosage: 100 MG/M2 IV
     Route: 042
     Dates: start: 20060523

REACTIONS (3)
  - ANAEMIA [None]
  - FEBRILE NEUTROPENIA [None]
  - URINE ANALYSIS ABNORMAL [None]
